FAERS Safety Report 10786787 (Version 2)
Quarter: 2015Q2

REPORT INFORMATION
  Report Type: Spontaneous
  Country: US (occurrence: US)
  Receive Date: 20150211
  Receipt Date: 20150413
  Transmission Date: 20150821
  Serious: Yes (Other)
  Sender: FDA-Public Use
  Company Number: US-BIOGENIDEC-2015BI013466

PATIENT
  Age: 37 Year
  Sex: Female

DRUGS (4)
  1. CYMBALTA [Concomitant]
     Active Substance: DULOXETINE HYDROCHLORIDE
  2. XANAX [Concomitant]
     Active Substance: ALPRAZOLAM
  3. TECFIDERA [Suspect]
     Active Substance: DIMETHYL FUMARATE
     Indication: MULTIPLE SCLEROSIS
     Route: 048
     Dates: start: 20150121, end: 20150126
  4. LEVOTHYROXINE [Concomitant]
     Active Substance: LEVOTHYROXINE

REACTIONS (3)
  - Flushing [Unknown]
  - Burning sensation [Unknown]
  - Pain [Unknown]

NARRATIVE: CASE EVENT DATE: 20150126
